FAERS Safety Report 8218770-3 (Version None)
Quarter: 2012Q1

REPORT INFORMATION
  Report Type: 
  Country: None (occurrence: None)
  Receive Date: 20120306
  Receipt Date: 20111207
  Transmission Date: 20120608
  Serious: Yes (Life-Threatening)
  Sender: FDA-Public Use
  Company Number: US-007242

PATIENT
  Age: 34 Year
  Sex: Female
  Weight: 61 kg

DRUGS (2)
  1. ISOVUE-370 [Suspect]
     Indication: COMPUTERISED TOMOGRAM
     Dosage: 100ML ONCE INTRAVENOUS (NOT OTHERWISE SPECIFIED)
     Route: 042
     Dates: start: 20111206, end: 20111206
  2. ISOVUE-370 [Suspect]
     Indication: SIALOADENITIS
     Dosage: 100ML ONCE INTRAVENOUS (NOT OTHERWISE SPECIFIED)
     Route: 042
     Dates: start: 20111206, end: 20111206

REACTIONS (5)
  - THROAT TIGHTNESS [None]
  - CHEST DISCOMFORT [None]
  - FLUSHING [None]
  - DYSPNOEA [None]
  - EYE SWELLING [None]
